FAERS Safety Report 7154287-5 (Version None)
Quarter: 2010Q4

REPORT INFORMATION
  Report Type: 
  Country: None (occurrence: None)
  Receive Date: 20101213
  Receipt Date: 20101201
  Transmission Date: 20110411
  Serious: Yes (Hospitalization)
  Sender: FDA-Public Use
  Company Number: ES-MEDIMMUNE-MEDI-0011910

PATIENT
  Sex: Female

DRUGS (2)
  1. SYNAGIS [Suspect]
     Dates: start: 20101001, end: 20101001
  2. SYNAGIS [Suspect]
     Dates: start: 20101101, end: 20101101

REACTIONS (2)
  - ABDOMINAL DISCOMFORT [None]
  - VOMITING [None]
